FAERS Safety Report 9425858 (Version 2)
Quarter: 2013Q3

REPORT INFORMATION
  Report Type: Spontaneous
  Country: AT (occurrence: AT)
  Receive Date: 20130729
  Receipt Date: 20130829
  Transmission Date: 20140515
  Serious: Yes (Hospitalization, Disabling, Other)
  Sender: FDA-Public Use
  Company Number: AT-ABBOTT-13P-009-1123403-00

PATIENT
  Age: 34 Year
  Sex: Female
  Weight: 90 kg

DRUGS (3)
  1. HUMIRA [Suspect]
     Indication: CROHN^S DISEASE
     Route: 058
     Dates: start: 201211, end: 201307
  2. IMMUNOPRIN [Concomitant]
     Indication: PRODUCT USED FOR UNKNOWN INDICATION
  3. LOSARTAN [Concomitant]
     Indication: PRODUCT USED FOR UNKNOWN INDICATION

REACTIONS (4)
  - Encephalitis [Not Recovered/Not Resolved]
  - Hypoaesthesia [Recovering/Resolving]
  - Nuclear magnetic resonance imaging brain abnormal [Not Recovered/Not Resolved]
  - Multiple sclerosis [Unknown]
